FAERS Safety Report 4843706-2 (Version None)
Quarter: 2005Q4

REPORT INFORMATION
  Report Type: 
  Country: None (occurrence: None)
  Receive Date: 20051202
  Receipt Date: 20051121
  Transmission Date: 20060501
  Serious: Yes (Other)
  Sender: FDA-Public Use
  Company Number: PHBS2005JP17140

PATIENT

DRUGS (2)
  1. VOLTAREN [Suspect]
     Indication: BACK PAIN
     Route: 048
  2. MYONAL [Concomitant]
     Indication: BACK PAIN
     Route: 048

REACTIONS (1)
  - PLEURAL EFFUSION [None]
